FAERS Safety Report 9507326 (Version 1)
Quarter: 2013Q3

REPORT INFORMATION
  Report Type: Spontaneous
  Country: AU (occurrence: AU)
  Receive Date: 20130909
  Receipt Date: 20130909
  Transmission Date: 20140515
  Serious: Yes (Other)
  Sender: FDA-Public Use
  Company Number: AU-PFIZER INC-2013254921

PATIENT
  Age: 19 Year
  Sex: Male

DRUGS (5)
  1. XANAX [Suspect]
     Indication: ANXIETY
     Dosage: UNK
     Route: 048
  2. MORPHINE SULFATE [Suspect]
     Indication: HEADACHE
     Dosage: UNK, (30 TO 60 MG DAILY DOSE)
     Route: 048
  3. OXYCODONE [Suspect]
     Indication: HEADACHE
     Dosage: UNK
     Route: 048
  4. PANADEINE FORTE [Suspect]
     Indication: HEADACHE
     Dosage: UNK
     Route: 048
  5. VALIUM [Suspect]
     Indication: ANXIETY
     Dosage: UNK
     Route: 048

REACTIONS (5)
  - Drug dependence [Unknown]
  - Euphoric mood [Unknown]
  - Somnolence [Unknown]
  - Sleep attacks [Unknown]
  - Activities of daily living impaired [Unknown]
